FAERS Safety Report 4572111-1 (Version None)
Quarter: 2005Q1

REPORT INFORMATION
  Report Type: 
  Country: None (occurrence: None)
  Receive Date: 20050202
  Receipt Date: 20050118
  Transmission Date: 20050727
  Serious: Yes (Other)
  Sender: FDA-Public Use
  Company Number: USA050188616

PATIENT
  Age: 71 Year
  Sex: Female

DRUGS (5)
  1. FORTEO [Suspect]
     Indication: BONE DISORDER
     Dates: start: 20050117
  2. CORTICOSTEROID NOS [Concomitant]
  3. BENADRYL [Concomitant]
  4. DILAUDID [Concomitant]
  5. ATIVAN [Concomitant]

REACTIONS (8)
  - DIZZINESS [None]
  - FALL [None]
  - FEELING ABNORMAL [None]
  - JOINT INJURY [None]
  - LOSS OF CONSCIOUSNESS [None]
  - MIGRAINE [None]
  - PHARMACEUTICAL PRODUCT COMPLAINT [None]
  - TREMOR [None]
